FAERS Safety Report 10222351 (Version 2)
Quarter: 2014Q2

REPORT INFORMATION
  Report Type: Spontaneous
  Country: FR (occurrence: FR)
  Receive Date: 20140606
  Receipt Date: 20140618
  Transmission Date: 20141212
  Serious: Yes (Congenital Anomaly, Other)
  Sender: FDA-Public Use
  Company Number: FR-JNJFOC-20140517923

PATIENT
  Age: 0 Day
  Sex: Female
  Weight: 3.11 kg

DRUGS (7)
  1. PREZISTA [Suspect]
     Indication: HIV INFECTION
     Route: 064
     Dates: start: 20130628, end: 20140309
  2. NORVIR [Suspect]
     Indication: HIV INFECTION
     Route: 064
     Dates: start: 20130628, end: 20140309
  3. TRUVADA [Suspect]
     Indication: HIV INFECTION
     Dosage: 200MG/245MG
     Route: 064
     Dates: start: 20130628, end: 20140309
  4. BACTRIM [Suspect]
     Indication: PRODUCT USED FOR UNKNOWN INDICATION
     Dosage: 200MG/245MG
     Route: 064
     Dates: start: 20130628, end: 20140309
  5. FOLINORAL [Suspect]
     Indication: PRODUCT USED FOR UNKNOWN INDICATION
     Dosage: 200MG/245MG
     Route: 064
     Dates: start: 20130628, end: 20140309
  6. PREDNISOLONE [Suspect]
     Indication: INFLUENZA LIKE ILLNESS
     Dosage: 200MG/245MG
     Route: 064
     Dates: start: 20140222, end: 20140226
  7. AUGMENTIN [Suspect]
     Indication: INFLUENZA LIKE ILLNESS
     Dosage: 200MG/245MG
     Route: 064
     Dates: start: 20140222, end: 20140226

REACTIONS (4)
  - Chondroma [Not Recovered/Not Resolved]
  - Congenital foot malformation [Recovered/Resolved with Sequelae]
  - Congenital hand malformation [Recovered/Resolved with Sequelae]
  - Foetal exposure during pregnancy [Recovered/Resolved]
